FAERS Safety Report 9009147 (Version 1)
Quarter: 2013Q1

REPORT INFORMATION
  Report Type: Report from Study
  Country: US (occurrence: US)
  Receive Date: 20130111
  Receipt Date: 20130111
  Transmission Date: 20140127
  Serious: Yes (Other)
  Sender: FDA-Public Use
  Company Number: US-ABBOTT-13P-163-1030586-00

PATIENT
  Sex: Female
  Weight: 72.64 kg

DRUGS (7)
  1. HUMIRA [Suspect]
     Indication: UVEITIS
     Dates: start: 201203
  2. XYZAL [Concomitant]
     Indication: PRODUCT USED FOR UNKNOWN INDICATION
  3. VERAMIST NASAL SPRAY [Concomitant]
     Indication: PRODUCT USED FOR UNKNOWN INDICATION
  4. IRON [Concomitant]
     Indication: PRODUCT USED FOR UNKNOWN INDICATION
  5. CITRUCEL [Concomitant]
     Indication: PRODUCT USED FOR UNKNOWN INDICATION
  6. MULTIVITAMINS [Concomitant]
     Indication: PRODUCT USED FOR UNKNOWN INDICATION
  7. PREDNISOLONE [Concomitant]
     Indication: PRODUCT USED FOR UNKNOWN INDICATION
     Dosage: EYE DROPS

REACTIONS (2)
  - Cataract [Recovered/Resolved]
  - Off label use [Not Recovered/Not Resolved]
